FAERS Safety Report 10432355 (Version 1)
Quarter: 2014Q3

REPORT INFORMATION
  Report Type: Spontaneous
  Country: JP (occurrence: JP)
  Receive Date: 20140905
  Receipt Date: 20140905
  Transmission Date: 20150326
  Serious: Yes (Death, Other)
  Sender: FDA-Public Use
  Company Number: JP-OTSUKA-JP-2014-17130

PATIENT

DRUGS (2)
  1. PLETAAL [Suspect]
     Active Substance: CILOSTAZOL
     Indication: ISCHAEMIC STROKE
     Dosage: UNK
     Route: 048
  2. OZAGREL HYDROCHLORIDE [Concomitant]
     Active Substance: OZAGREL HYDROCHLORIDE
     Indication: PRODUCT USED FOR UNKNOWN INDICATION
     Dosage: UNK
     Route: 065

REACTIONS (2)
  - Subarachnoid haemorrhage [Unknown]
  - Pneumonia aspiration [Fatal]
